FAERS Safety Report 21512853 (Version 2)
Quarter: 2022Q4

REPORT INFORMATION
  Report Type: Spontaneous
  Country: US (occurrence: US)
  Receive Date: 20221027
  Receipt Date: 20221031
  Transmission Date: 20230113
  Serious: Yes (Other)
  Sender: FDA-Public Use
  Company Number: ALC2022US004852

PATIENT
  Age: 1 Month
  Sex: Male

DRUGS (1)
  1. CYCLOPENTOLATE HYDROCHLORIDE [Suspect]
     Active Substance: CYCLOPENTOLATE HYDROCHLORIDE
     Indication: Product used for unknown indication
     Dosage: UNK
     Route: 047

REACTIONS (8)
  - Systemic toxicity [Recovered/Resolved]
  - Accidental overdose [Unknown]
  - Off label use [Unknown]
  - Lethargy [Recovered/Resolved]
  - Tremor [Recovered/Resolved]
  - Dry eye [Recovered/Resolved]
  - Mydriasis [Recovered/Resolved]
  - Urinary retention [Recovered/Resolved]

NARRATIVE: CASE EVENT DATE: 20221017
